FAERS Safety Report 4700030-6 (Version None)
Quarter: 2005Q2

REPORT INFORMATION
  Report Type: 
  Country: None (occurrence: None)
  Receive Date: 20050623
  Receipt Date: 20050609
  Transmission Date: 20051028
  Serious: Yes (Other)
  Sender: FDA-Public Use
  Company Number: 200412298BCC

PATIENT
  Age: 74 Year
  Sex: Female

DRUGS (4)
  1. ALEVE [Suspect]
     Indication: DEMENTIA ALZHEIMER'S TYPE
     Dosage: BID, ORAL
     Route: 048
     Dates: start: 20030505, end: 20040426
  2. MAALOX [Concomitant]
     Indication: PROPHYLAXIS
  3. IBUPROFEN [Concomitant]
  4. NITROGLYCERIN [Concomitant]

REACTIONS (1)
  - ANGINA PECTORIS [None]
